FAERS Safety Report 13577554 (Version 1)
Quarter: 2017Q2

REPORT INFORMATION
  Report Type: Spontaneous
  Country: US (occurrence: US)
  Receive Date: 20170524
  Receipt Date: 20170524
  Transmission Date: 20170830
  Serious: No
  Sender: FDA-Public Use
  Company Number: US-ELI_LILLY_AND_COMPANY-US201705007269

PATIENT
  Sex: Female

DRUGS (3)
  1. STRATTERA [Suspect]
     Active Substance: ATOMOXETINE HYDROCHLORIDE
     Indication: ATTENTION DEFICIT/HYPERACTIVITY DISORDER
     Dosage: UNK, UNKNOWN
     Route: 048
     Dates: start: 20161123
  2. WELLBUTRIN [Concomitant]
     Active Substance: BUPROPION HYDROCHLORIDE
     Indication: PRODUCT USED FOR UNKNOWN INDICATION
     Dosage: 150 MG, DAILY
     Route: 065
  3. ZOLOFT [Concomitant]
     Active Substance: SERTRALINE HYDROCHLORIDE
     Indication: PRODUCT USED FOR UNKNOWN INDICATION
     Dosage: 1.5 MG, DAILY
     Route: 065

REACTIONS (47)
  - Self esteem decreased [Not Recovered/Not Resolved]
  - Mydriasis [Recovered/Resolved]
  - Orthostatic hypotension [Recovered/Resolved]
  - Thirst [Recovered/Resolved]
  - Decreased appetite [Recovered/Resolved]
  - Tremor [Recovered/Resolved]
  - Scratch [Recovered/Resolved]
  - Abdominal pain upper [Recovered/Resolved]
  - Feeling jittery [Recovered/Resolved]
  - Hypoaesthesia [Recovered/Resolved]
  - Asthenia [Recovered/Resolved]
  - Dysmenorrhoea [Recovered/Resolved]
  - Anal haemorrhage [Recovered/Resolved]
  - Blunted affect [Not Recovered/Not Resolved]
  - Abnormal dreams [Recovered/Resolved]
  - Psychotic disorder [Recovered/Resolved]
  - Delusion [Recovered/Resolved]
  - Constipation [Recovered/Resolved]
  - Anxiety [Recovered/Resolved]
  - Haematoma [Recovered/Resolved]
  - Aggression [Recovered/Resolved]
  - Urinary retention [Recovered/Resolved]
  - Menorrhagia [Recovered/Resolved]
  - Vision blurred [Recovered/Resolved]
  - Paraesthesia [Recovered/Resolved]
  - Depression [Recovered/Resolved]
  - Hypoglycaemia [Recovered/Resolved]
  - Derealisation [Recovered/Resolved]
  - Dyspepsia [Recovered/Resolved]
  - Tachycardia [Recovered/Resolved]
  - Irritability [Recovered/Resolved]
  - Hot flush [Recovered/Resolved]
  - Memory impairment [Not Recovered/Not Resolved]
  - Dry mouth [Recovered/Resolved]
  - Nausea [Recovered/Resolved]
  - Chills [Recovered/Resolved]
  - Palpitations [Recovered/Resolved]
  - Thinking abnormal [Recovered/Resolved]
  - Throat irritation [Recovered/Resolved]
  - Pelvic pain [Recovered/Resolved]
  - Mood altered [Recovered/Resolved]
  - Chest pain [Recovered/Resolved]
  - Hallucination, auditory [Recovered/Resolved]
  - Weight decreased [Recovered/Resolved]
  - Pruritus [Recovered/Resolved]
  - Insomnia [Recovered/Resolved]
  - Vomiting [Recovered/Resolved]
